FAERS Safety Report 10708038 (Version 1)
Quarter: 2015Q1

REPORT INFORMATION
  Report Type: Spontaneous
  Country: US (occurrence: US)
  Receive Date: 20150113
  Receipt Date: 20150113
  Transmission Date: 20150721
  Serious: No
  Sender: FDA-Public Use
  Company Number: US-PFIZER INC-2015009615

PATIENT
  Age: 47 Year
  Sex: Female
  Weight: 127 kg

DRUGS (2)
  1. CELECOXIB. [Suspect]
     Active Substance: CELECOXIB
     Indication: ARTHROPATHY
     Dosage: 200 MG, 2X/DAY
     Dates: start: 20150101
  2. CELEBREX [Suspect]
     Active Substance: CELECOXIB
     Indication: ARTHROPATHY
     Dosage: 200 MG, 2X/DAY

REACTIONS (4)
  - Intentional product misuse [Unknown]
  - Blood pressure increased [Unknown]
  - Drug ineffective [Unknown]
  - Discomfort [Unknown]
